FAERS Safety Report 10602239 (Version 1)
Quarter: 2014Q4

REPORT INFORMATION
  Report Type: Spontaneous
  Country: IT (occurrence: None)
  Receive Date: 20141120
  Receipt Date: 20141120
  Transmission Date: 20150529
  Serious: Yes (Other)
  Sender: FDA-Public Use
  Company Number: 2014BEX00003

PATIENT
  Age: 51 Year
  Sex: Male

DRUGS (6)
  1. ASPIRIN (ACETYLSALICYLIC ACID) [Concomitant]
     Active Substance: ASPIRIN
  2. TELMISARTAN. [Concomitant]
     Active Substance: TELMISARTAN
  3. CARVEDILOL. [Suspect]
     Active Substance: CARVEDILOL
     Indication: MYOCARDIAL INFARCTION
  4. TICAGRELOR [Suspect]
     Active Substance: TICAGRELOR
     Indication: MYOCARDIAL INFARCTION
  5. IVABRADINE [Suspect]
     Active Substance: IVABRADINE
     Indication: MYOCARDIAL INFARCTION
  6. ATORVASTATIN [Concomitant]
     Active Substance: ATORVASTATIN

REACTIONS (3)
  - Drug interaction [None]
  - Sinus arrest [None]
  - Bradycardia [None]
